FAERS Safety Report 5182967-X (Version None)
Quarter: 2006Q4

REPORT INFORMATION
  Report Type: 
  Country: None (occurrence: None)
  Receive Date: 20061212
  Receipt Date: 20061129
  Transmission Date: 20070319
  Serious: Yes (Other)
  Sender: FDA-Public Use
  Company Number: 2006147775

PATIENT
  Age: 52 Year
  Sex: Female
  Weight: 86.1834 kg

DRUGS (2)
  1. AROMASIN [Suspect]
     Indication: BREAST CANCER
     Dosage: 25 MG (25 MG, EVERY DAY)
     Dates: start: 20060701
  2. TOPROL-XL [Concomitant]

REACTIONS (4)
  - ABDOMINAL DISTENSION [None]
  - ARTHRALGIA [None]
  - HYPOAESTHESIA [None]
  - WEIGHT INCREASED [None]
